FAERS Safety Report 4556452-X (Version None)
Quarter: 2005Q1

REPORT INFORMATION
  Report Type: 
  Country: None (occurrence: None)
  Receive Date: 20050114
  Receipt Date: 20050106
  Transmission Date: 20050727
  Serious: Yes (Death)
  Sender: FDA-Public Use
  Company Number: 2005JP000048

PATIENT
  Age: 21 Month
  Sex: Female

DRUGS (1)
  1. PROGRAF [Suspect]
     Indication: SMALL INTESTINE TRANSPLANT
     Dates: start: 20030919, end: 20031030

REACTIONS (1)
  - SEPTIC SHOCK [None]
